FAERS Safety Report 4695228-X (Version None)
Quarter: 2005Q2

REPORT INFORMATION
  Report Type: 
  Country: None (occurrence: None)
  Receive Date: 20050614
  Receipt Date: 20050204
  Transmission Date: 20051028
  Serious: No
  Sender: FDA-Public Use
  Company Number: USA040876989

PATIENT
  Age: 78 Year
  Sex: Male

DRUGS (4)
  1. CIALIS [Suspect]
     Dosage: 20 MG
  2. FUROSEMIDE [Concomitant]
  3. TERAZOSIN HCL [Concomitant]
  4. VASOTEC [Concomitant]

REACTIONS (1)
  - DIZZINESS [None]
